FAERS Safety Report 4810844-X (Version None)
Quarter: 2005Q4

REPORT INFORMATION
  Report Type: 
  Country: None (occurrence: None)
  Receive Date: 20051024
  Receipt Date: 20051012
  Transmission Date: 20060501
  Serious: Yes (Other)
  Sender: FDA-Public Use
  Company Number: 2005141907

PATIENT
  Age: 15 Year
  Sex: Male
  Weight: 59.8748 kg

DRUGS (1)
  1. GENOTROPIN [Suspect]
     Indication: ILL-DEFINED DISORDER
     Dosage: (DAILY, EVERY DAY), SUBCUTANEOUS
     Route: 058
     Dates: start: 20040301, end: 20050503

REACTIONS (2)
  - BODY HEIGHT INCREASED [None]
  - WEIGHT INCREASED [None]
